FAERS Safety Report 26087766 (Version 1)
Quarter: 2025Q4

REPORT INFORMATION
  Report Type: Spontaneous
  Country: EU (occurrence: EU)
  Receive Date: 20251125
  Receipt Date: 20251125
  Transmission Date: 20260118
  Serious: Yes (Life-Threatening)
  Sender: PFIZER
  Company Number: None

PATIENT
  Age: 52 Year
  Sex: Male
  Weight: 50 kg

DRUGS (2)
  1. LINEZOLID [Suspect]
     Active Substance: LINEZOLID
     Indication: Bacterial sepsis
     Dosage: 600 MG, 2X/DAY
     Route: 042
     Dates: start: 20250416, end: 20250427
  2. TYGACIL [Concomitant]
     Active Substance: TIGECYCLINE
     Indication: Sepsis
     Dosage: 50 MG, 2X/DAY
     Route: 042
     Dates: start: 20250416, end: 20250501

REACTIONS (2)
  - Myelosuppression [Recovered/Resolved]
  - Pancytopenia [Recovered/Resolved]

NARRATIVE: CASE EVENT DATE: 20250430
